FAERS Safety Report 15065297 (Version 1)
Quarter: 2018Q2

REPORT INFORMATION
  Report Type: Spontaneous
  Country: US (occurrence: US)
  Receive Date: 20180626
  Receipt Date: 20180626
  Transmission Date: 20180711
  Serious: No
  Sender: FDA-Public Use
  Company Number: US-B.I. PHARMACEUTICALS,INC./RIDGEFIELD-2018-BI-032009

PATIENT
  Sex: Female

DRUGS (3)
  1. SPIRIVA [Suspect]
     Active Substance: TIOTROPIUM BROMIDE MONOHYDRATE
     Indication: CHRONIC OBSTRUCTIVE PULMONARY DISEASE
     Dosage: ONCE DAILY;  FORM STRENGTH: 18 MCG; FORMULATION: CAPSULE? ADMIN? YES ?ACTION: DOSE NOT CHANGED
     Route: 055
     Dates: start: 2007
  2. COMBIVENT [Suspect]
     Active Substance: ALBUTEROL SULFATE\IPRATROPIUM BROMIDE
     Dosage: BID;  FORM STRENGTH: 18 MCG / 103 MCG; FORM: INHALATION AEROSOL?ADMIN? YES ?ACTION: DOSE NOT CHANGED
     Route: 055
     Dates: start: 201804
  3. COMBIVENT [Suspect]
     Active Substance: ALBUTEROL SULFATE\IPRATROPIUM BROMIDE
     Indication: CHRONIC OBSTRUCTIVE PULMONARY DISEASE
     Dosage: 1 INHAL PRN TO MAX OF 6 TOTAL DAILY; STRENGTH:18 MCG/103MCG; FORM: INHAL AEROSOL?ACTION:DRUG REDUCED
     Route: 055
     Dates: start: 2015, end: 201804

REACTIONS (3)
  - Anxiety [Not Recovered/Not Resolved]
  - Dyspnoea [Not Recovered/Not Resolved]
  - Cataract [Unknown]

NARRATIVE: CASE EVENT DATE: 2015
